FAERS Safety Report 9988153 (Version 4)
Quarter: 2014Q2

REPORT INFORMATION
  Report Type: Spontaneous
  Country: US (occurrence: US)
  Receive Date: 20140308
  Receipt Date: 20140507
  Transmission Date: 20141212
  Serious: No
  Sender: FDA-Public Use
  Company Number: US-009507513-1403USA002253

PATIENT
  Age: 21 Year
  Sex: Male
  Weight: 75.28 kg

DRUGS (3)
  1. PROVENTIL [Suspect]
     Indication: DYSPNOEA
     Dosage: 2 INHALATIONS, QOD
     Route: 055
     Dates: start: 20140303, end: 20140305
  2. PROVENTIL [Suspect]
     Indication: ASTHMA
  3. FORADIL [Suspect]
     Indication: ASTHMA
     Dosage: INHALATION
     Dates: start: 2004

REACTIONS (5)
  - Dehydration [Recovered/Resolved]
  - Respiratory tract infection [Unknown]
  - Drug ineffective [Unknown]
  - Nausea [Recovered/Resolved]
  - Vomiting [Recovered/Resolved]
